FAERS Safety Report 22655814 (Version 1)
Quarter: 2023Q2

REPORT INFORMATION
  Report Type: Spontaneous
  Country: US (occurrence: US)
  Receive Date: 20230629
  Receipt Date: 20230629
  Transmission Date: 20230721
  Serious: Yes (Hospitalization, Other)
  Sender: FDA-Public Use
  Company Number: US-KARYOPHARM-2023KPT001521

PATIENT

DRUGS (12)
  1. XPOVIO [Suspect]
     Active Substance: SELINEXOR
     Indication: Product used for unknown indication
     Dosage: 100 MG, WEEKLY
     Route: 048
     Dates: start: 20230612, end: 20230612
  2. METOPROLOL [Concomitant]
     Active Substance: METOPROLOL
  3. ACYCLOVIR [Concomitant]
     Active Substance: ACYCLOVIR
  4. BACTRIM DS [Concomitant]
     Active Substance: SULFAMETHOXAZOLE\TRIMETHOPRIM
  5. PRILOSEC [Concomitant]
     Active Substance: OMEPRAZOLE MAGNESIUM
  6. FLOMAX [Concomitant]
     Active Substance: TAMSULOSIN HYDROCHLORIDE
  7. CYMBALTA [Concomitant]
     Active Substance: DULOXETINE HYDROCHLORIDE
  8. LIPITOR [Concomitant]
     Active Substance: ATORVASTATIN CALCIUM
  9. VELCADE [Concomitant]
     Active Substance: BORTEZOMIB
  10. DEXAMETHASONE [Concomitant]
     Active Substance: DEXAMETHASONE
  11. APREPITANT [Concomitant]
     Active Substance: APREPITANT
  12. LOVENOX [Concomitant]
     Active Substance: ENOXAPARIN SODIUM

REACTIONS (2)
  - Pneumonia aspiration [Unknown]
  - Vomiting [Unknown]

NARRATIVE: CASE EVENT DATE: 20230612
